FAERS Safety Report 23147021 (Version 2)
Quarter: 2023Q4

REPORT INFORMATION
  Report Type: Report from Study
  Country: US (occurrence: US)
  Receive Date: 20231106
  Receipt Date: 20231114
  Transmission Date: 20240110
  Serious: Yes (Other)
  Sender: FDA-Public Use
  Company Number: US-drreddys-CLI/USA/23/0181082

PATIENT
  Age: 19 Year
  Sex: Female

DRUGS (2)
  1. ZENATANE [Suspect]
     Active Substance: ISOTRETINOIN
     Indication: Ichthyosis
     Dosage: RMA ISSUE DATES: 29 OCTOBER 2019 12:20:20 PM, 27 NOVEMBER 2019 11:57:47 AM, 16 AUGUST 2023 01:35:43
     Dates: start: 20211208, end: 20231009
  2. ZENATANE [Suspect]
     Active Substance: ISOTRETINOIN
     Indication: Acne
     Dosage: RMA ISSUE DATES: 29 DECEMBER 2019 01:03:35 PM, 30 JANUARY 2020 08:58:42 AM, 01 MARCH 2020 06:36:31 P
     Dates: start: 20211208, end: 20231009

REACTIONS (2)
  - Exposure during pregnancy [Unknown]
  - Product use in unapproved indication [Unknown]

NARRATIVE: CASE EVENT DATE: 20231023
